FAERS Safety Report 6144976-3 (Version None)
Quarter: 2009Q2

REPORT INFORMATION
  Report Type: 
  Country: None (occurrence: None)
  Receive Date: 20090406
  Receipt Date: 20090330
  Transmission Date: 20091009
  Serious: Yes (Life-Threatening, Hospitalization, Disabling, Other)
  Sender: FDA-Public Use
  Company Number: ES-AVENTIS-200913290GDDC

PATIENT
  Age: 20 Year
  Sex: Male
  Weight: 80 kg

DRUGS (1)
  1. TELFAST                            /01314201/ [Suspect]
     Route: 048
     Dates: start: 20090201

REACTIONS (2)
  - PETECHIAE [None]
  - THROMBOCYTOPENIA [None]
